FAERS Safety Report 6170102-0 (Version None)
Quarter: 2009Q2

REPORT INFORMATION
  Report Type: 
  Country: None (occurrence: None)
  Receive Date: 20090428
  Receipt Date: 20090421
  Transmission Date: 20091009
  Serious: Yes (Hospitalization)
  Sender: FDA-Public Use
  Company Number: B0567734A

PATIENT
  Sex: Female

DRUGS (6)
  1. ZANTAC [Suspect]
     Indication: STRESS ULCER
     Dosage: 50MG TWICE PER DAY
     Route: 065
     Dates: start: 20080301, end: 20080307
  2. ZANTAC [Suspect]
     Dosage: 50MG TWICE PER DAY
     Route: 065
     Dates: start: 20080312, end: 20080315
  3. PHENOBARBITAL TAB [Suspect]
     Indication: DRUG USE FOR UNKNOWN INDICATION
     Dosage: 120MG PER DAY
     Route: 048
     Dates: start: 20080301, end: 20080327
  4. THYRADIN S [Concomitant]
     Indication: HYPOTHYROIDISM
     Dosage: 50MCG PER DAY
     Route: 048
     Dates: start: 20080302
  5. MAGLAX [Concomitant]
     Indication: CONSTIPATION
     Dosage: 990MG PER DAY
     Route: 048
     Dates: start: 20080301
  6. FRANDOL S [Concomitant]
     Dosage: 40MG PER DAY
     Route: 062
     Dates: start: 20080302

REACTIONS (1)
  - STEVENS-JOHNSON SYNDROME [None]
